FAERS Safety Report 7632141-X (Version None)
Quarter: 2011Q3

REPORT INFORMATION
  Report Type: 
  Country: None (occurrence: None)
  Receive Date: 20110725
  Receipt Date: 20110725
  Transmission Date: 20111222
  Serious: Yes (Other)
  Sender: FDA-Public Use
  Company Number: None

PATIENT
  Age: 25 Year
  Sex: Female
  Weight: 81.646 kg

DRUGS (1)
  1. DEXAMETHASONE 1.5MG TAB [Suspect]
     Indication: INTERVERTEBRAL DISC PROTRUSION
     Dosage: 13 DAY PACK
     Route: 048
     Dates: start: 20110617, end: 20110630

REACTIONS (4)
  - ACNE [None]
  - ERYTHEMA [None]
  - SKIN IRRITATION [None]
  - PRURITUS [None]
